FAERS Safety Report 7804502-7 (Version None)
Quarter: 2011Q4

REPORT INFORMATION
  Report Type: 
  Country: None (occurrence: None)
  Receive Date: 20111010
  Receipt Date: 20111004
  Transmission Date: 20120403
  Serious: Yes (Hospitalization)
  Sender: FDA-Public Use
  Company Number: PHHY2011US17212

PATIENT
  Sex: Female
  Weight: 31.746 kg

DRUGS (1)
  1. EXJADE [Suspect]
     Indication: SICKLE CELL ANAEMIA
     Dosage: 875 MG, QD
     Route: 048
     Dates: start: 20070417

REACTIONS (4)
  - ABDOMINAL PAIN UPPER [None]
  - SICKLE CELL ANAEMIA WITH CRISIS [None]
  - VASCULAR OCCLUSION [None]
  - BACK PAIN [None]
